FAERS Safety Report 6065353-X (Version None)
Quarter: 2009Q1

REPORT INFORMATION
  Report Type: 
  Country: None (occurrence: None)
  Receive Date: 20090204
  Receipt Date: 20090123
  Transmission Date: 20090719
  Serious: Yes (Hospitalization)
  Sender: FDA-Public Use
  Company Number: FR-WYE-H07754209

PATIENT
  Sex: Female

DRUGS (6)
  1. INIPOMP [Suspect]
     Dosage: UNKNOWN
     Route: 048
     Dates: end: 20081031
  2. METHOTREXATE [Interacting]
     Dosage: 5040 MG OVERDOSE AMOUNT
     Route: 042
     Dates: start: 20081025, end: 20081025
  3. ZELITREX [Concomitant]
     Dosage: 1000 MG UNSPECIFIED FREQUENCY
     Route: 048
  4. ACETAMINOPHEN [Concomitant]
     Dosage: ^AS REQUIRED^
     Route: 048
  5. PROZAC [Concomitant]
     Dosage: 20 MG, UNKNOWN FREQUENCY
     Route: 048
  6. CALCIUM FOLINATE [Concomitant]
     Dosage: UNKNOWN
     Dates: start: 20081027

REACTIONS (4)
  - DRUG INTERACTION [None]
  - DRUG LEVEL INCREASED [None]
  - OVERDOSE [None]
  - RENAL FAILURE ACUTE [None]
